FAERS Safety Report 7164620-6 (Version None)
Quarter: 2010Q4

REPORT INFORMATION
  Report Type: 
  Country: None (occurrence: None)
  Receive Date: 20101215
  Receipt Date: 20101208
  Transmission Date: 20110411
  Serious: Yes (Death, Hospitalization)
  Sender: FDA-Public Use
  Company Number: US-CELGENEUS-163-21880-10101955

PATIENT
  Sex: Male

DRUGS (3)
  1. REVLIMID [Suspect]
     Indication: AMYLOIDOSIS
     Route: 048
     Dates: start: 20100701
  2. REVLIMID [Suspect]
     Route: 048
     Dates: start: 20100901, end: 20101101
  3. REVLIMID [Suspect]
     Route: 048
     Dates: start: 20100701, end: 20101101

REACTIONS (3)
  - AMYLOIDOSIS [None]
  - DIZZINESS [None]
  - HYPOTENSION [None]
